FAERS Safety Report 16059966 (Version 1)
Quarter: 2019Q2

REPORT INFORMATION
  Report Type: Spontaneous
  Country: US (occurrence: US)
  Receive Date: 20190311
  Receipt Date: 20190311
  Transmission Date: 20190711
  Serious: No
  Sender: FDA-Public Use
  Company Number: None

PATIENT
  Age: 40 Year
  Sex: Female
  Weight: 66.6 kg

DRUGS (2)
  1. DAILY MULTIVITAMIN [Concomitant]
     Active Substance: VITAMINS
  2. CHERRY COUGH DROPS [Suspect]
     Active Substance: MENTHOL
     Indication: COUGH
     Dosage: ?          QUANTITY:40 DROP(S);OTHER FREQUENCY:EVERY TWO HOURS;?
     Route: 048
     Dates: start: 20190215, end: 20190218

REACTIONS (4)
  - Skin disorder [None]
  - Product use issue [None]
  - Skin discomfort [None]
  - Rash pruritic [None]

NARRATIVE: CASE EVENT DATE: 20190218
